FAERS Safety Report 9324785 (Version 2)
Quarter: 2013Q3

REPORT INFORMATION
  Report Type: Spontaneous
  Country: JP (occurrence: JP)
  Receive Date: 20130603
  Receipt Date: 20130701
  Transmission Date: 20140515
  Serious: Yes (Hospitalization)
  Sender: FDA-Public Use
  Company Number: JP-OTSUKA-JP-2013-12007

PATIENT
  Age: 59 Year
  Sex: Female

DRUGS (6)
  1. BUSULFEX [Suspect]
     Indication: BONE MARROW CONDITIONING REGIMEN
     Dosage: 12.8 MG/KG, DAILY DOSE
     Route: 041
  2. FLUDARABINE [Concomitant]
     Indication: BONE MARROW CONDITIONING REGIMEN
     Dosage: 150 MG/M2, DAILY DOSE
     Route: 065
  3. TACROLIMUS [Concomitant]
     Indication: PROPHYLAXIS AGAINST GRAFT VERSUS HOST DISEASE
     Route: 065
  4. MYCOPHENOLATE MOFETIL [Concomitant]
     Indication: PROPHYLAXIS AGAINST GRAFT VERSUS HOST DISEASE
     Route: 048
  5. GEMTUZUMAB OZOGAMICIN [Concomitant]
     Indication: ACUTE MYELOID LEUKAEMIA
     Route: 041
  6. GEMTUZUMAB OZOGAMICIN [Concomitant]
     Route: 041

REACTIONS (1)
  - Gastric antral vascular ectasia [Recovered/Resolved]
